FAERS Safety Report 14566930 (Version 1)
Quarter: 2018Q1

REPORT INFORMATION
  Report Type: Spontaneous
  Country: JP (occurrence: JP)
  Receive Date: 20180223
  Receipt Date: 20180223
  Transmission Date: 20180509
  Serious: Yes (Hospitalization, Other)
  Sender: FDA-Public Use
  Company Number: JP-BAYER-2018-032692

PATIENT
  Age: 62 Year
  Sex: Male
  Weight: 52.9 kg

DRUGS (3)
  1. STIVARGA [Suspect]
     Active Substance: REGORAFENIB
     Indication: HEPATOCELLULAR CARCINOMA
     Dosage: DAILY DOSE 120 MG
     Route: 048
     Dates: start: 20170726
  2. NEXAVAR [Suspect]
     Active Substance: SORAFENIB
     Indication: HEPATOCELLULAR CARCINOMA
     Dosage: DAILY DOSE 600 MG
     Route: 048
     Dates: end: 20170726
  3. NEXAVAR [Suspect]
     Active Substance: SORAFENIB
     Indication: HEPATOCELLULAR CARCINOMA
     Dosage: DAILY DOSE 400 MG
     Route: 048
     Dates: start: 20150915

REACTIONS (9)
  - Hepatocellular carcinoma [None]
  - Constipation [None]
  - Jaundice [None]
  - Liver disorder [None]
  - Metastases to lung [None]
  - Diarrhoea [None]
  - Malaise [None]
  - Palmar-plantar erythrodysaesthesia syndrome [None]
  - Decreased appetite [None]

NARRATIVE: CASE EVENT DATE: 20171122
